FAERS Safety Report 8535910-7 (Version None)
Quarter: 2012Q3

REPORT INFORMATION
  Report Type: 
  Country: None (occurrence: None)
  Receive Date: 20120725
  Receipt Date: 20120719
  Transmission Date: 20120928
  Serious: Yes (Other)
  Sender: FDA-Public Use
  Company Number: PHEH2012US008967

PATIENT
  Sex: Male
  Weight: 52 kg

DRUGS (2)
  1. FOCALIN XR [Suspect]
     Indication: ATTENTION DEFICIT/HYPERACTIVITY DISORDER
     Dosage: 25MG IN THE MORNING AND 15 MG LATER IN THE DAY
     Route: 048
  2. FOCALIN XR [Suspect]
     Dosage: 15 MG
     Route: 048
     Dates: start: 20120202, end: 20120427

REACTIONS (6)
  - DYSPNOEA [None]
  - AMNESIA [None]
  - HEADACHE [None]
  - VISUAL IMPAIRMENT [None]
  - DISORIENTATION [None]
  - ABDOMINAL PAIN UPPER [None]
